FAERS Safety Report 5486599-5 (Version None)
Quarter: 2007Q3

REPORT INFORMATION
  Report Type: 
  Country: None (occurrence: None)
  Receive Date: 20070920
  Receipt Date: 20070605
  Transmission Date: 20080115
  Serious: Yes (Hospitalization)
  Sender: FDA-Public Use
  Company Number: 07P-163-0370703-00

PATIENT
  Age: 23 Year
  Sex: Female

DRUGS (3)
  1. DEPAKOTE ER [Suspect]
     Indication: BIPOLAR DISORDER
     Dosage: 2000 MG, 1 IN 1 D, PER ORAL
     Route: 048
     Dates: start: 20070301
  2. HALOPERIDOL [Suspect]
  3. LITHIUM CARBONATE [Suspect]

REACTIONS (1)
  - THROMBOCYTOPENIA [None]
